FAERS Safety Report 20676926 (Version 1)
Quarter: 2022Q2

REPORT INFORMATION
  Report Type: Spontaneous
  Country: US (occurrence: US)
  Receive Date: 20220406
  Receipt Date: 20220406
  Transmission Date: 20220721
  Serious: No
  Sender: FDA-Public Use
  Company Number: US-APOTEX-2022AP005228

PATIENT
  Age: 49 Year
  Sex: Female

DRUGS (1)
  1. CEFUROXIME [Suspect]
     Active Substance: CEFUROXIME
     Indication: Postoperative wound infection
     Dosage: UNK
     Route: 065

REACTIONS (2)
  - Skin test positive [Unknown]
  - Urticaria [Recovering/Resolving]
